FAERS Safety Report 25722707 (Version 1)
Quarter: 2025Q3

REPORT INFORMATION
  Report Type: Spontaneous
  Country: US (occurrence: US)
  Receive Date: 20250825
  Receipt Date: 20250825
  Transmission Date: 20251020
  Serious: Yes (Other)
  Sender: BAYER HEALTHCARE LLC
  Company Number: US-BAYER-2025A110996

PATIENT
  Age: 49 Year
  Sex: Female
  Weight: 72.1 kg

DRUGS (2)
  1. ASPIRIN [Suspect]
     Active Substance: ASPIRIN
     Indication: Coronary arterial stent insertion
     Dosage: UNK UNK, QD
  2. IBUPROFEN [Suspect]
     Active Substance: IBUPROFEN

REACTIONS (3)
  - Anastomotic ulcer haemorrhage [Recovered/Resolved]
  - Gastrointestinal necrosis [Recovered/Resolved]
  - Anaemia [None]
